FAERS Safety Report 8790981 (Version 2)
Quarter: 2012Q4

REPORT INFORMATION
  Report Type: Spontaneous
  Country: US (occurrence: None)
  Receive Date: 20120907
  Receipt Date: 20120911
  Transmission Date: 20130627
  Serious: Yes (Other)
  Sender: FDA-Public Use
  Company Number: AUR-APL-2012-03800

PATIENT
  Sex: Female

DRUGS (9)
  1. CEFPODOXIME PROXETIL [Suspect]
     Indication: URINARY TRACT INFECTION
     Dosage: 400 MG (200 MG,2 IN 1 D)
     Dates: start: 20120820, end: 20120823
  2. CEFPODOXIME PROXETIL [Suspect]
     Indication: URINARY TRACT INFECTION
  3. SIMVASTATIN (SIMVASTATIN) [Suspect]
     Indication: HYPERLIPIDEMIA
  4. ATENOLOL [Suspect]
     Indication: BLOOD PRESSURE HIGH
  5. GABAPENTIN [Suspect]
     Indication: NEUROPATHY
  6. PROTONIX [Suspect]
     Indication: GASTROESOPHAGEAL REFLUX DISEASE
  7. PAXIL [Suspect]
     Indication: ANXIETY
  8. HEPARIN [Suspect]
     Indication: DEEP VEIN THROMBOSIS
     Dosage: 960000 IU (5000 IU,8 IN 1 HR)
     Route: 058
  9. HEPARIN [Suspect]
     Indication: DEEP VEIN THROMBOSIS
     Route: 058

REACTIONS (2)
  - Agranulocytosis [None]
  - Blood disorder [None]
